FAERS Safety Report 14694814 (Version 1)
Quarter: 2018Q1

REPORT INFORMATION
  Report Type: Spontaneous
  Country: FR (occurrence: FR)
  Receive Date: 20180329
  Receipt Date: 20180329
  Transmission Date: 20180509
  Serious: Yes (Hospitalization, Other)
  Sender: FDA-Public Use
  Company Number: FR-OTSUKA-2018_007764

PATIENT
  Age: 32 Year
  Sex: Female

DRUGS (3)
  1. BUSULFAN. [Suspect]
     Active Substance: BUSULFAN
     Indication: ACUTE MYELOID LEUKAEMIA
     Dosage: 3.2 MG/KG, QD (1/DAY)
     Route: 042
     Dates: start: 20180107, end: 20180110
  2. TENORMIN [Suspect]
     Active Substance: ATENOLOL
     Indication: SINUS TACHYCARDIA
     Dosage: 25 MG, QD (1/DAY)
     Route: 048
     Dates: start: 20180126, end: 20180130
  3. ENDOXAN [Suspect]
     Active Substance: CYCLOPHOSPHAMIDE
     Indication: ACUTE MYELOID LEUKAEMIA
     Dosage: 60 MG/KG, QD (1/DAY)
     Route: 042
     Dates: start: 20180111, end: 20180112

REACTIONS (1)
  - Cardiogenic shock [Recovered/Resolved]

NARRATIVE: CASE EVENT DATE: 20180127
